FAERS Safety Report 10575369 (Version 3)
Quarter: 2014Q4

REPORT INFORMATION
  Report Type: Report from Study
  Country: US (occurrence: US)
  Receive Date: 20141111
  Receipt Date: 20141124
  Transmission Date: 20150529
  Serious: Yes (Other)
  Sender: FDA-Public Use
  Company Number: US-BIOGENIDEC-2014BI107957

PATIENT
  Age: 41 Year
  Sex: Female

DRUGS (15)
  1. NAPROXEN. [Concomitant]
     Active Substance: NAPROXEN
     Route: 048
  2. TYSABRI [Suspect]
     Active Substance: NATALIZUMAB
     Indication: MULTIPLE SCLEROSIS
     Route: 042
     Dates: start: 20111231, end: 20140827
  3. AMITRIPTYLINE [Concomitant]
     Active Substance: AMITRIPTYLINE
     Route: 048
  4. ALBUTEROL. [Concomitant]
     Active Substance: ALBUTEROL
     Dates: start: 20130116
  5. CHANTIX [Concomitant]
     Active Substance: VARENICLINE TARTRATE
     Route: 048
  6. LEVOTHYROXINE [Concomitant]
     Active Substance: LEVOTHYROXINE
     Route: 048
     Dates: start: 20140602
  7. IMITREX [Concomitant]
     Active Substance: SUMATRIPTAN\SUMATRIPTAN SUCCINATE
  8. VITAMIN D [Concomitant]
     Active Substance: CHOLECALCIFEROL
     Route: 048
     Dates: start: 20110606
  9. TYSABRI [Suspect]
     Active Substance: NATALIZUMAB
     Indication: MULTIPLE SCLEROSIS
     Route: 042
     Dates: start: 20110310, end: 20110412
  10. BACLOFEN. [Concomitant]
     Active Substance: BACLOFEN
     Route: 048
     Dates: start: 20130725
  11. CLOTRIMAZOLE. [Concomitant]
     Active Substance: CLOTRIMAZOLE
     Dates: start: 20131003
  12. NAPROXEN. [Concomitant]
     Active Substance: NAPROXEN
     Route: 048
  13. CYMBALTA [Concomitant]
     Active Substance: DULOXETINE HYDROCHLORIDE
     Route: 048
  14. ASMANEX [Concomitant]
     Active Substance: MOMETASONE FUROATE
     Dates: start: 20140804
  15. HYDROCORTISONE CREAM [Concomitant]
     Active Substance: HYDROCORTISONE

REACTIONS (4)
  - Urinary tract infection [Not Recovered/Not Resolved]
  - Seizure [Unknown]
  - Drug ineffective [Not Recovered/Not Resolved]
  - Bipolar disorder [Not Recovered/Not Resolved]

NARRATIVE: CASE EVENT DATE: 20120930
